FAERS Safety Report 9072631 (Version 1)
Quarter: 2013Q1

REPORT INFORMATION
  Report Type: Report from Study
  Country: US (occurrence: US)
  Receive Date: 20130129
  Receipt Date: 20130129
  Transmission Date: 20140127
  Serious: No
  Sender: FDA-Public Use
  Company Number: US-ABBOTT-12P-163-0929543-00

PATIENT
  Age: 12 Year
  Sex: Female

DRUGS (3)
  1. HUMIRA 40 MG/0.8 ML PEN [Suspect]
     Indication: CROHN^S DISEASE
     Dates: start: 20120211
  2. ANTACID [Concomitant]
     Indication: PRODUCT USED FOR UNKNOWN INDICATION
  3. UNKNOWN IRON SUPPLEMENT [Concomitant]
     Indication: MINERAL SUPPLEMENTATION

REACTIONS (1)
  - Injection site haemorrhage [Recovered/Resolved]
